FAERS Safety Report 12992732 (Version 1)
Quarter: 2016Q4

REPORT INFORMATION
  Report Type: Spontaneous
  Country: JP (occurrence: JP)
  Receive Date: 20161202
  Receipt Date: 20161202
  Transmission Date: 20170207
  Serious: Yes (Disabling, Other)
  Sender: FDA-Public Use
  Company Number: JP-ROCHE-1861206

PATIENT
  Age: 50 Year
  Sex: Male

DRUGS (78)
  1. ZYPREXA [Suspect]
     Active Substance: OLANZAPINE
     Indication: SCHIZOPHRENIA
     Route: 048
     Dates: start: 20060810, end: 20060904
  2. LULLAN [Suspect]
     Active Substance: PEROSPIRONE HYDROCHLORIDE
     Indication: SCHIZOPHRENIA
     Route: 048
     Dates: start: 20051017, end: 20060312
  3. AKINETON [Suspect]
     Active Substance: BIPERIDEN HYDROCHLORIDE
     Indication: DYSKINESIA
     Route: 048
     Dates: start: 20110114, end: 20120524
  4. DEPAS [Suspect]
     Active Substance: ETIZOLAM
     Indication: SLEEP DISORDER THERAPY
     Route: 048
     Dates: start: 20120817, end: 20120913
  5. RIVOTRIL [Suspect]
     Active Substance: CLONAZEPAM
     Indication: DYSKINESIA
     Route: 048
     Dates: start: 20140725, end: 20141113
  6. ABILIFY [Suspect]
     Active Substance: ARIPIPRAZOLE
     Indication: SCHIZOPHRENIA
     Route: 048
     Dates: start: 20100604, end: 20101216
  7. ABILIFY [Suspect]
     Active Substance: ARIPIPRAZOLE
     Indication: SCHIZOPHRENIA
     Route: 048
     Dates: start: 20120302, end: 20120329
  8. ABILIFY [Suspect]
     Active Substance: ARIPIPRAZOLE
     Indication: SCHIZOPHRENIA
     Route: 048
     Dates: start: 20130201, end: 20130523
  9. ABILIFY [Suspect]
     Active Substance: ARIPIPRAZOLE
     Indication: SCHIZOPHRENIA
     Route: 048
     Dates: start: 20141017, end: 20150407
  10. ZYPREXA [Suspect]
     Active Substance: OLANZAPINE
     Indication: SCHIZOPHRENIA
     Route: 048
     Dates: start: 20060711, end: 20060809
  11. SULPIRIDE [Suspect]
     Active Substance: SULPIRIDE
     Indication: SCHIZOPHRENIA
     Route: 048
     Dates: start: 20140110, end: 20140206
  12. RISPERDAL [Suspect]
     Active Substance: RISPERIDONE
     Indication: SCHIZOPHRENIA
     Dosage: AS NEEDED
     Route: 048
     Dates: start: 20081208, end: 20091207
  13. TASMOLIN [Suspect]
     Active Substance: BIPERIDEN
     Indication: PARKINSONISM
     Route: 048
     Dates: start: 20020802, end: 20020829
  14. TASMOLIN [Suspect]
     Active Substance: BIPERIDEN
     Indication: PARKINSONISM
     Route: 048
     Dates: start: 20021206, end: 20021219
  15. TASMOLIN [Suspect]
     Active Substance: BIPERIDEN
     Indication: PARKINSONISM
     Route: 048
     Dates: start: 20021220, end: 20030123
  16. AMOBAN [Suspect]
     Active Substance: ZOPICLONE
     Indication: SLEEP DISORDER THERAPY
     Route: 048
     Dates: start: 20150422, end: 20150522
  17. RIVOTRIL [Suspect]
     Active Substance: CLONAZEPAM
     Indication: DYSKINESIA
     Route: 048
     Dates: start: 20121109, end: 20130523
  18. ABILIFY [Suspect]
     Active Substance: ARIPIPRAZOLE
     Indication: SCHIZOPHRENIA
     Route: 048
     Dates: start: 20110513, end: 20110915
  19. ABILIFY [Suspect]
     Active Substance: ARIPIPRAZOLE
     Indication: SCHIZOPHRENIA
     Route: 048
     Dates: start: 20140110, end: 20140206
  20. ZYPREXA [Suspect]
     Active Substance: OLANZAPINE
     Indication: SCHIZOPHRENIA
     Route: 048
     Dates: start: 20020802, end: 20020815
  21. ZYPREXA [Suspect]
     Active Substance: OLANZAPINE
     Indication: SCHIZOPHRENIA
     Route: 048
     Dates: start: 20080619, end: 20081217
  22. ZYPREXA [Suspect]
     Active Substance: OLANZAPINE
     Indication: SCHIZOPHRENIA
     Route: 048
     Dates: start: 20110415, end: 20110512
  23. LULLAN [Suspect]
     Active Substance: PEROSPIRONE HYDROCHLORIDE
     Indication: SCHIZOPHRENIA
     Route: 048
     Dates: start: 20031205, end: 20051016
  24. GOODMIN [Suspect]
     Active Substance: BROTIZOLAM
     Indication: SLEEP DISORDER THERAPY
     Route: 048
     Dates: start: 20111111, end: 20130328
  25. BENZALIN (JAPAN) [Suspect]
     Active Substance: NITRAZEPAM
     Indication: SLEEP DISORDER THERAPY
     Route: 048
     Dates: start: 20131108, end: 20150522
  26. ROHYPNOL [Suspect]
     Active Substance: FLUNITRAZEPAM
     Indication: SLEEP DISORDER THERAPY
     Route: 048
     Dates: start: 20130201, end: 20130328
  27. ROHYPNOL [Suspect]
     Active Substance: FLUNITRAZEPAM
     Indication: SLEEP DISORDER THERAPY
     Route: 048
     Dates: start: 20130329, end: 20130523
  28. ABILIFY [Suspect]
     Active Substance: ARIPIPRAZOLE
     Indication: SCHIZOPHRENIA
     Route: 048
     Dates: start: 20101217, end: 20110217
  29. ABILIFY [Suspect]
     Active Substance: ARIPIPRAZOLE
     Indication: SCHIZOPHRENIA
     Route: 048
     Dates: start: 20130104, end: 20130131
  30. ABILIFY [Suspect]
     Active Substance: ARIPIPRAZOLE
     Indication: SCHIZOPHRENIA
     Route: 048
     Dates: start: 20130524, end: 20130718
  31. ABILIFY [Suspect]
     Active Substance: ARIPIPRAZOLE
     Indication: SCHIZOPHRENIA
     Route: 048
     Dates: start: 20150408, end: 20150421
  32. ZYPREXA [Suspect]
     Active Substance: OLANZAPINE
     Indication: SCHIZOPHRENIA
     Route: 048
     Dates: start: 20020913, end: 20021024
  33. ZYPREXA [Suspect]
     Active Substance: OLANZAPINE
     Indication: SCHIZOPHRENIA
     Route: 048
     Dates: start: 20060905, end: 20061011
  34. ZYPREXA [Suspect]
     Active Substance: OLANZAPINE
     Indication: SCHIZOPHRENIA
     Dosage: AS NEEDED
     Route: 048
     Dates: start: 20080918, end: 20081018
  35. RISPERDAL [Suspect]
     Active Substance: RISPERIDONE
     Indication: SCHIZOPHRENIA
     Dosage: AS NEEDED
     Route: 048
     Dates: start: 20090219, end: 20091207
  36. LINTON (JAPAN) [Suspect]
     Active Substance: HALOPERIDOL
     Indication: SCHIZOPHRENIA
     Route: 048
     Dates: start: 20120330, end: 20120524
  37. ARTANE [Suspect]
     Active Substance: TRIHEXYPHENIDYL HYDROCHLORIDE
     Indication: DYSKINESIA
     Route: 048
     Dates: start: 20141114, end: 20150108
  38. ARTANE [Suspect]
     Active Substance: TRIHEXYPHENIDYL HYDROCHLORIDE
     Indication: DYSKINESIA
     Route: 048
     Dates: start: 20150306, end: 20150407
  39. AKIRIDEN [Suspect]
     Active Substance: BIPERIDEN
     Indication: DYSKINESIA
     Route: 048
     Dates: start: 20101119, end: 20110113
  40. GOODMIN [Suspect]
     Active Substance: BROTIZOLAM
     Indication: SLEEP DISORDER THERAPY
     Dosage: AS NEEDED
     Route: 048
     Dates: start: 20050521, end: 20050814
  41. ABILIFY [Suspect]
     Active Substance: ARIPIPRAZOLE
     Indication: SCHIZOPHRENIA
     Route: 048
     Dates: start: 20120525, end: 20130103
  42. ABILIFY [Suspect]
     Active Substance: ARIPIPRAZOLE
     Indication: SCHIZOPHRENIA
     Route: 048
     Dates: start: 20140502, end: 20140821
  43. ABILIFY [Suspect]
     Active Substance: ARIPIPRAZOLE
     Indication: SCHIZOPHRENIA
     Route: 048
     Dates: start: 20140919, end: 20141016
  44. SEROQUEL [Suspect]
     Active Substance: QUETIAPINE FUMARATE
     Indication: SCHIZOPHRENIA
     Route: 048
     Dates: start: 20060313, end: 20060710
  45. SEROQUEL [Suspect]
     Active Substance: QUETIAPINE FUMARATE
     Indication: SCHIZOPHRENIA
     Route: 048
     Dates: start: 20141017, end: 20150522
  46. TASMOLIN [Suspect]
     Active Substance: BIPERIDEN
     Indication: PARKINSONISM
     Route: 048
     Dates: start: 20100924, end: 20101118
  47. AKINETON [Suspect]
     Active Substance: BIPERIDEN HYDROCHLORIDE
     Indication: DYSKINESIA
     Route: 048
     Dates: start: 20120525, end: 20121108
  48. GOODMIN [Suspect]
     Active Substance: BROTIZOLAM
     Indication: SLEEP DISORDER THERAPY
     Route: 048
     Dates: start: 20020802, end: 20020912
  49. GOODMIN [Suspect]
     Active Substance: BROTIZOLAM
     Indication: SLEEP DISORDER THERAPY
     Dosage: AS NEEDED
     Route: 048
     Dates: start: 20110708, end: 20110818
  50. DEPAS [Suspect]
     Active Substance: ETIZOLAM
     Indication: SLEEP DISORDER THERAPY
     Route: 048
     Dates: start: 20120914, end: 20121108
  51. ABILIFY [Suspect]
     Active Substance: ARIPIPRAZOLE
     Indication: SCHIZOPHRENIA
     Route: 048
     Dates: start: 20110916, end: 20111208
  52. ABILIFY [Suspect]
     Active Substance: ARIPIPRAZOLE
     Indication: SCHIZOPHRENIA
     Route: 048
     Dates: start: 20140207, end: 20140501
  53. ABILIFY [Suspect]
     Active Substance: ARIPIPRAZOLE
     Indication: SCHIZOPHRENIA
     Route: 048
     Dates: start: 20140822, end: 20140918
  54. ZYPREXA [Suspect]
     Active Substance: OLANZAPINE
     Indication: SCHIZOPHRENIA
     Route: 048
     Dates: start: 20070130, end: 20070501
  55. ZYPREXA [Suspect]
     Active Substance: OLANZAPINE
     Indication: SCHIZOPHRENIA
     Route: 048
     Dates: start: 20070502, end: 20070601
  56. SEROQUEL [Suspect]
     Active Substance: QUETIAPINE FUMARATE
     Indication: SCHIZOPHRENIA
     Route: 048
     Dates: start: 20120203, end: 20120301
  57. TASMOLIN [Suspect]
     Active Substance: BIPERIDEN
     Indication: PARKINSONISM
     Route: 048
     Dates: start: 20020830, end: 20021205
  58. TASMOLIN [Suspect]
     Active Substance: BIPERIDEN
     Indication: PARKINSONISM
     Route: 048
     Dates: start: 20100730, end: 20100923
  59. ARTANE [Suspect]
     Active Substance: TRIHEXYPHENIDYL HYDROCHLORIDE
     Indication: DYSKINESIA
     Route: 048
     Dates: start: 20101119, end: 20110113
  60. AKIRIDEN [Suspect]
     Active Substance: BIPERIDEN
     Indication: DYSKINESIA
     Route: 048
     Dates: start: 20150408, end: 20150421
  61. GOODMIN [Suspect]
     Active Substance: BROTIZOLAM
     Indication: SLEEP DISORDER THERAPY
     Route: 048
     Dates: start: 20130524, end: 20131107
  62. ABILIFY [Suspect]
     Active Substance: ARIPIPRAZOLE
     Indication: SCHIZOPHRENIA
     Route: 048
     Dates: start: 20061012, end: 20061115
  63. ABILIFY [Suspect]
     Active Substance: ARIPIPRAZOLE
     Indication: SCHIZOPHRENIA
     Route: 048
     Dates: start: 20091208, end: 20091217
  64. ABILIFY [Suspect]
     Active Substance: ARIPIPRAZOLE
     Indication: SCHIZOPHRENIA
     Route: 048
     Dates: start: 20130719, end: 20140109
  65. ZYPREXA [Suspect]
     Active Substance: OLANZAPINE
     Indication: SCHIZOPHRENIA
     Route: 048
     Dates: start: 20021025, end: 20031204
  66. ZYPREXA [Suspect]
     Active Substance: OLANZAPINE
     Indication: SCHIZOPHRENIA
     Route: 048
     Dates: start: 20070602, end: 20080618
  67. ARTANE [Suspect]
     Active Substance: TRIHEXYPHENIDYL HYDROCHLORIDE
     Indication: DYSKINESIA
     Route: 048
     Dates: start: 20140919, end: 20141113
  68. ARTANE [Suspect]
     Active Substance: TRIHEXYPHENIDYL HYDROCHLORIDE
     Indication: DYSKINESIA
     Route: 048
     Dates: start: 20150109, end: 20150305
  69. GOODMIN [Suspect]
     Active Substance: BROTIZOLAM
     Indication: SLEEP DISORDER THERAPY
     Route: 048
     Dates: start: 20110819, end: 20111013
  70. DEPAS [Suspect]
     Active Substance: ETIZOLAM
     Indication: SLEEP DISORDER THERAPY
     Route: 048
     Dates: start: 20121207, end: 20130103
  71. ABILIFY [Suspect]
     Active Substance: ARIPIPRAZOLE
     Indication: SCHIZOPHRENIA
     Route: 048
     Dates: start: 20110218, end: 20110414
  72. ABILIFY [Suspect]
     Active Substance: ARIPIPRAZOLE
     Indication: SCHIZOPHRENIA
     Route: 048
     Dates: start: 20111209, end: 20120202
  73. ZYPREXA [Suspect]
     Active Substance: OLANZAPINE
     Indication: SCHIZOPHRENIA
     Route: 048
     Dates: start: 20020816, end: 20020912
  74. ZYPREXA [Suspect]
     Active Substance: OLANZAPINE
     Indication: SCHIZOPHRENIA
     Route: 048
     Dates: start: 20061116, end: 20061215
  75. SEROQUEL [Suspect]
     Active Substance: QUETIAPINE FUMARATE
     Indication: SCHIZOPHRENIA
     Route: 048
     Dates: start: 20140822, end: 20140918
  76. SULPIRIDE [Suspect]
     Active Substance: SULPIRIDE
     Indication: SCHIZOPHRENIA
     Route: 048
     Dates: start: 20061225, end: 20070129
  77. ARTANE [Suspect]
     Active Substance: TRIHEXYPHENIDYL HYDROCHLORIDE
     Indication: DYSKINESIA
     Route: 048
     Dates: start: 20140110, end: 20140206
  78. BENZALIN (JAPAN) [Suspect]
     Active Substance: NITRAZEPAM
     Indication: SLEEP DISORDER THERAPY
     Route: 048
     Dates: start: 20111014, end: 20111110

REACTIONS (9)
  - Motor dysfunction [Unknown]
  - Insomnia [Unknown]
  - Off label use [Unknown]
  - Dysphagia [Unknown]
  - Mastication disorder [Unknown]
  - Speech disorder [Unknown]
  - Dystonia [Unknown]
  - Tardive dyskinesia [Unknown]
  - Dyskinesia [Unknown]
